FAERS Safety Report 11825186 (Version 10)
Quarter: 2017Q2

REPORT INFORMATION
  Report Type: Spontaneous
  Country: CA (occurrence: CA)
  Receive Date: 20151211
  Receipt Date: 20170501
  Transmission Date: 20170829
  Serious: Yes (Life-Threatening, Hospitalization, Other)
  Sender: FDA-Public Use
  Company Number: CA-ROCHE-1675591

PATIENT
  Age: 68 Year
  Sex: Female

DRUGS (4)
  1. XOLAIR [Suspect]
     Active Substance: OMALIZUMAB
     Dosage: UNK
     Route: 058
     Dates: start: 20170119
  2. XOLAIR [Suspect]
     Active Substance: OMALIZUMAB
     Indication: ASTHMA
     Route: 058
     Dates: start: 20150114
  3. XOLAIR [Suspect]
     Active Substance: OMALIZUMAB
     Dosage: UNK
     Route: 058
     Dates: start: 20160210
  4. XOLAIR [Suspect]
     Active Substance: OMALIZUMAB
     Dosage: UNK
     Route: 058
     Dates: start: 20170314

REACTIONS (24)
  - Incision site abscess [Recovering/Resolving]
  - Abdominal wall wound [Recovering/Resolving]
  - Infected skin ulcer [Recovering/Resolving]
  - Restrictive pulmonary disease [Unknown]
  - Urinary tract infection [Unknown]
  - Abdominal infection [Not Recovered/Not Resolved]
  - Post procedural infection [Recovering/Resolving]
  - Fistula [Unknown]
  - Respiratory disorder [Unknown]
  - Device malfunction [Unknown]
  - Temperature intolerance [Unknown]
  - Post procedural complication [Unknown]
  - Anaemia [Unknown]
  - Dyspnoea exertional [Unknown]
  - Chest discomfort [Recovering/Resolving]
  - Fall [Unknown]
  - Humidity intolerance [Unknown]
  - Gait disturbance [Unknown]
  - Asthma [Unknown]
  - Cough [Unknown]
  - Carbon monoxide diffusing capacity decreased [Unknown]
  - Malaise [Unknown]
  - Eczema [Recovering/Resolving]
  - Blood immunoglobulin G decreased [Unknown]

NARRATIVE: CASE EVENT DATE: 20150731
